FAERS Safety Report 22085975 (Version 1)
Quarter: 2023Q1

REPORT INFORMATION
  Report Type: Spontaneous
  Country: US (occurrence: US)
  Receive Date: 20230310
  Receipt Date: 20230310
  Transmission Date: 20230418
  Serious: No
  Sender: FDA-Public Use
  Company Number: US-PFIZER INC-2016348305

PATIENT

DRUGS (1)
  1. BACTERIOSTATIC WATER [Suspect]
     Active Substance: WATER
     Dosage: UNK

REACTIONS (3)
  - Dyspnoea [Unknown]
  - Somnolence [Unknown]
  - Dizziness [Unknown]
